APPROVED DRUG PRODUCT: DEFERASIROX
Active Ingredient: DEFERASIROX
Strength: 250MG
Dosage Form/Route: TABLET, FOR SUSPENSION;ORAL
Application: A207124 | Product #002 | TE Code: AB
Applicant: TEVA PHARMACEUTICALS USA INC
Approved: Sep 23, 2022 | RLD: No | RS: No | Type: RX